FAERS Safety Report 23326565 (Version 1)
Quarter: 2023Q4

REPORT INFORMATION
  Report Type: Report from Study
  Country: KR (occurrence: KR)
  Receive Date: 20231221
  Receipt Date: 20231221
  Transmission Date: 20240110
  Serious: Yes (Hospitalization, Other)
  Sender: FDA-Public Use
  Company Number: KR-BR-2023-0224

PATIENT
  Age: 72 Year
  Sex: Female
  Weight: 94.9 kg

DRUGS (19)
  1. LURBINECTEDIN [Suspect]
     Active Substance: LURBINECTEDIN
     Indication: Small cell lung cancer
     Dosage: 3.2 MILLIGRAM/SQ. METER, Q3W
     Route: 042
     Dates: start: 20231011, end: 20231011
  2. DEXAMETHASONE [Concomitant]
     Active Substance: DEXAMETHASONE
     Indication: Prophylaxis of nausea and vomiting
     Dosage: 5 MILLIGRAM, BID
     Route: 042
     Dates: start: 20231010, end: 20231011
  3. DEXAMETHASONE [Concomitant]
     Active Substance: DEXAMETHASONE
     Dosage: 8 MILLIGRAM, QD
     Route: 042
     Dates: start: 20231011, end: 20231011
  4. XIGDUO XR [Concomitant]
     Active Substance: DAPAGLIFLOZIN PROPANEDIOL\METFORMIN HYDROCHLORIDE
     Indication: Diabetes mellitus
     Dosage: 1 DOSAGE FORM, QD
     Route: 048
     Dates: start: 20231012, end: 20231024
  5. MUCOSERIN [Concomitant]
     Indication: Productive cough
     Dosage: 200 MILLIGRAM, BID
     Route: 048
     Dates: start: 20231012, end: 20231024
  6. ENTELON [Concomitant]
     Indication: Vascular disorder prophylaxis
     Dosage: 150 MILLIGRAM, BID
     Route: 048
     Dates: start: 20231012, end: 20231024
  7. ULTRACET ER SEMI [Concomitant]
     Indication: Pain management
     Dosage: 1 DOSAGE FORM, BID
     Route: 048
     Dates: start: 20231012, end: 20231024
  8. ROZEDUO [Concomitant]
     Indication: Hyperlipidaemia
     Dosage: 1 DOSAGE FORM, QD
     Route: 048
     Dates: start: 20231012, end: 20231024
  9. CANDEMORE [Concomitant]
     Indication: Hypertension
     Dosage: 4 MILLIGRAM, QD
     Route: 048
     Dates: start: 20231012, end: 20231024
  10. MONOLAIR [Concomitant]
     Indication: Chronic obstructive pulmonary disease
     Dosage: 10 MILLIGRAM, QD
     Route: 048
     Dates: start: 20231012, end: 20231024
  11. MEGAFORMIN [Concomitant]
     Indication: Diabetes mellitus
     Dosage: 1000 MILLIGRAM, QD
     Route: 048
     Dates: start: 20231012, end: 20231024
  12. LEVOPREN [Concomitant]
     Indication: Gastrointestinal motility disorder
     Dosage: 25 MILLIGRAM, TID
     Route: 048
     Dates: start: 20231012, end: 20231024
  13. GLIPTIDE [Concomitant]
     Indication: Gastrointestinal disorder prophylaxis
     Dosage: 200 MILLIGRAM, TID
     Route: 048
     Dates: start: 20231012, end: 20231024
  14. TIPAS [Concomitant]
     Indication: Gastrointestinal pain
     Dosage: 100 MILLIGRAM, TID
     Route: 048
     Dates: start: 20231012, end: 20231024
  15. INHIPLA [Concomitant]
     Indication: Prophylaxis
     Dosage: 75 MILLIGRAM, QD
     Route: 048
     Dates: start: 20231012, end: 20231024
  16. VASTINAN MR [Concomitant]
     Indication: Prophylaxis
     Dosage: 35 MILLIGRAM, BID
     Route: 048
     Dates: start: 20231012, end: 20231024
  17. XANAX XR [Concomitant]
     Active Substance: ALPRAZOLAM
     Indication: Affective disorder
     Dosage: 0.25 MILLIGRAM, TID
     Route: 048
     Dates: start: 20231012, end: 20231024
  18. RABEPRAZOLE [Concomitant]
     Active Substance: RABEPRAZOLE
     Indication: Prophylaxis
     Dosage: 20 MILLIGRAM, QD
     Route: 048
     Dates: start: 20231012, end: 20231024
  19. GLYCOPYRRONIUM\INDACATEROL [Concomitant]
     Active Substance: GLYCOPYRRONIUM\INDACATEROL
     Indication: Chronic obstructive pulmonary disease
     Dosage: 1 DOSAGE FORM, PRN
     Dates: start: 20231012, end: 20231024

REACTIONS (1)
  - Febrile neutropenia [Recovered/Resolved]

NARRATIVE: CASE EVENT DATE: 20231024
